FAERS Safety Report 6522232-9 (Version None)
Quarter: 2009Q4

REPORT INFORMATION
  Report Type: 
  Country: None (occurrence: None)
  Receive Date: 20091229
  Receipt Date: 20091229
  Transmission Date: 20100525
  Serious: Yes (Hospitalization)
  Sender: FDA-Public Use
  Company Number: None

PATIENT
  Age: 84 Year
  Sex: Male
  Weight: 77.6 kg

DRUGS (10)
  1. ASPIRIN [Suspect]
     Indication: CARDIOMYOPATHY
     Dosage: 325MG PO QD (HOME)
     Route: 048
  2. OMEPRAZOLE [Concomitant]
  3. INDOMETHACIN [Concomitant]
  4. CARVEDILOL [Concomitant]
  5. VERAPAMIL [Concomitant]
  6. FUROSEMIDE [Concomitant]
  7. ENALAPRIL [Concomitant]
  8. PENTOXIPHYLIN [Concomitant]
  9. VIAPRA [Concomitant]
  10. CIALIS [Concomitant]

REACTIONS (2)
  - HAEMOGLOBIN DECREASED [None]
  - HAEMORRHAGE [None]
